FAERS Safety Report 13468980 (Version 7)
Quarter: 2018Q1

REPORT INFORMATION
  Report Type: Spontaneous
  Country: JP (occurrence: JP)
  Receive Date: 20170421
  Receipt Date: 20180224
  Transmission Date: 20180508
  Serious: Yes (Hospitalization, Other)
  Sender: FDA-Public Use
  Company Number: JP-009507513-1704JPN001667J

PATIENT
  Age: 81 Year
  Sex: Female
  Weight: 52 kg

DRUGS (10)
  1. AMLODIPINE [Concomitant]
     Active Substance: AMLODIPINE BESYLATE
     Dosage: 5 MG, QD
     Route: 048
  2. OFLOXACIN. [Concomitant]
     Active Substance: OFLOXACIN
     Dosage: 1 DF, QD
     Route: 047
  3. CYANOCOBALAMIN. [Concomitant]
     Active Substance: CYANOCOBALAMIN
     Dosage: 1 DF, QD
     Route: 047
  4. CROMOGLICIN [Concomitant]
     Dosage: 1 DF, QD
     Route: 047
  5. SITAGLIPTIN PHOSPHATE [Concomitant]
     Active Substance: SITAGLIPTIN PHOSPHATE
     Dosage: 50 MG, QD
     Route: 048
  6. MEQUITAZINE [Concomitant]
     Active Substance: MEQUITAZINE
     Dosage: 3 MG, QD
     Route: 048
  7. KEYTRUDA [Suspect]
     Active Substance: PEMBROLIZUMAB
     Indication: LUNG ADENOCARCINOMA STAGE IV
     Dosage: 200 MG, Q3W
     Route: 041
     Dates: start: 20170407, end: 20171019
  8. AZILSARTAN [Concomitant]
     Active Substance: AZILSARTAN KAMEDOXOMIL
     Dosage: 40 MG, QD
     Route: 048
  9. FLUOROMETHOLONE. [Concomitant]
     Active Substance: FLUOROMETHOLONE
     Dosage: 1 DF, QD
     Route: 047
  10. ATORVASTATIN [Concomitant]
     Active Substance: ATORVASTATIN
     Dosage: 10 MG, QD
     Route: 048

REACTIONS (5)
  - Femoral neck fracture [Recovered/Resolved]
  - Encephalopathy [Recovered/Resolved]
  - Diarrhoea [Recovered/Resolved]
  - Infection [Unknown]
  - Diarrhoea [Recovered/Resolved]

NARRATIVE: CASE EVENT DATE: 20170414
